FAERS Safety Report 21525139 (Version 1)
Quarter: 2022Q4

REPORT INFORMATION
  Report Type: Report from Study
  Country: US (occurrence: US)
  Receive Date: 20221030
  Receipt Date: 20221030
  Transmission Date: 20230113
  Serious: No
  Sender: FDA-Public Use
  Company Number: US-ABBVIE-4176282

PATIENT
  Sex: Male

DRUGS (11)
  1. VENCLEXTA [Suspect]
     Active Substance: VENETOCLAX
     Indication: Chronic lymphocytic leukaemia
     Route: 048
     Dates: start: 20220525, end: 202210
  2. 100 mg Allopurinol (Allopurinol) [Concomitant]
     Indication: Product used for unknown indication
  3. 325 mg Aspirin (Acetylsalicylic acid) [Concomitant]
     Indication: Product used for unknown indication
  4. 500 mg Metformin HCL (Metformin hydrochloride) [Concomitant]
     Indication: Product used for unknown indication
  5. GAZYVA [Concomitant]
     Active Substance: OBINUTUZUMAB
     Indication: Product used for unknown indication
     Dosage: 1000MG/40ML
  6. 5 mg Amlodipine besylate (Amlodipine besilate) [Concomitant]
     Indication: Product used for unknown indication
  7. 4 mg Ondansetron, ODT (Ondansetron) [Concomitant]
     Indication: Product used for unknown indication
  8. 50 mg Diclofenac potassium (Diclofenac potassium) [Concomitant]
     Indication: Product used for unknown indication
  9. Lisinopril/hydrochlorothiazide (Hydrochlorothiazide;Lisinopril) [Concomitant]
     Indication: Product used for unknown indication
     Dosage: 20-25MG
  10. AMOXICILLIN [Concomitant]
     Active Substance: AMOXICILLIN
     Indication: Product used for unknown indication
  11. 40 mg Atorvastatin (Atorvastatin calcium) [Concomitant]
     Indication: Product used for unknown indication

REACTIONS (1)
  - White blood cell count decreased [Recovering/Resolving]
